FAERS Safety Report 6945079-8 (Version None)
Quarter: 2010Q3

REPORT INFORMATION
  Report Type: 
  Country: None (occurrence: None)
  Receive Date: 20100827
  Receipt Date: 20100825
  Transmission Date: 20110219
  Serious: Yes (Death)
  Sender: FDA-Public Use
  Company Number: PHHY2010US56420

PATIENT
  Sex: Female
  Weight: 59.864 kg

DRUGS (4)
  1. EXJADE [Suspect]
     Indication: IRON OVERLOAD
     Dosage: 500 MG
     Route: 048
     Dates: start: 20091029
  2. DILTIAZEM [Concomitant]
  3. PAXIL [Concomitant]
  4. ASPIRIN [Concomitant]

REACTIONS (1)
  - DEATH [None]
